FAERS Safety Report 24281461 (Version 1)
Quarter: 2024Q3

REPORT INFORMATION
  Report Type: Spontaneous
  Country: US (occurrence: US)
  Receive Date: 20240904
  Receipt Date: 20240904
  Transmission Date: 20241016
  Serious: Yes (Hospitalization)
  Sender: DOMPE FARMACEUTICI
  Company Number: US-FARMAPROD-202408-3048

PATIENT
  Age: 70 Year
  Sex: Male

DRUGS (10)
  1. OXERVATE [Suspect]
     Active Substance: CENEGERMIN-BKBJ
     Indication: Neurotrophic keratopathy
     Route: 047
     Dates: start: 20240724
  2. OXERVATE [Suspect]
     Active Substance: CENEGERMIN-BKBJ
  3. OXERVATE [Suspect]
     Active Substance: CENEGERMIN-BKBJ
  4. OXERVATE [Suspect]
     Active Substance: CENEGERMIN-BKBJ
  5. MAGNESIUM [Concomitant]
     Active Substance: MAGNESIUM
  6. DILTIAZEM [Concomitant]
     Active Substance: DILTIAZEM
     Dosage: 24HR ER (CD)
  7. XARELTO [Concomitant]
     Active Substance: RIVAROXABAN
  8. BREZTRI [Concomitant]
     Active Substance: BUDESONIDE\FORMOTEROL\GLYCOPYRROLATE
  9. REPHRESH [Concomitant]
     Dosage: GEL WITH PREFILLED APPLICATOR (ML)
  10. CEQUA [Concomitant]
     Active Substance: CYCLOSPORINE

REACTIONS (3)
  - Pneumonia [Recovered/Resolved]
  - Weight increased [Unknown]
  - Constipation [Unknown]

NARRATIVE: CASE EVENT DATE: 20240101
